FAERS Safety Report 18407076 (Version 2)
Quarter: 2020Q4

REPORT INFORMATION
  Report Type: Report from Study
  Country: None (occurrence: US)
  Receive Date: 20201021
  Receipt Date: 20201118
  Transmission Date: 20210114
  Serious: Yes (Hospitalization)
  Sender: FDA-Public Use
  Company Number: US-ABBVIE-20K-163-3611084-00

PATIENT
  Sex: Male

DRUGS (5)
  1. VENCLEXTA [Suspect]
     Active Substance: VENETOCLAX
     Indication: B-CELL SMALL LYMPHOCYTIC LYMPHOMA
     Dosage: WEEK 1\TAKE WITH A MEAL AND WATER AT THE?SAME TIME EACH DAY
     Route: 048
  2. VENCLEXTA [Suspect]
     Active Substance: VENETOCLAX
     Indication: GASTROINTESTINAL HAEMORRHAGE
     Dosage: WEEK 2\TAKE WITH A MEAL AND WATER AT THE?SAME TIME EACH DAY
     Route: 048
  3. VENCLEXTA [Suspect]
     Active Substance: VENETOCLAX
     Dosage: WEEK 3\TAKE WITH A MEAL AND WATER AT THE?SAME TIME EACH DAY
     Route: 048
  4. VENCLEXTA [Suspect]
     Active Substance: VENETOCLAX
     Dosage: WEEK 4\TAKE WITH A MEAL AND WATER AT THE?SAME TIME EACH DAY
     Route: 048
  5. VENCLEXTA [Suspect]
     Active Substance: VENETOCLAX
     Dosage: TAKE WITH A MEAL AND WATER AT THE?SAME TIME EACH DAY
     Route: 048

REACTIONS (1)
  - Arterial haemorrhage [Unknown]
